FAERS Safety Report 16301228 (Version 2)
Quarter: 2019Q2

REPORT INFORMATION
  Report Type: Spontaneous
  Country: US (occurrence: US)
  Receive Date: 20190510
  Receipt Date: 20190522
  Transmission Date: 20190711
  Serious: No
  Sender: FDA-Public Use
  Company Number: US-TEVA-2019-US-1045111

PATIENT
  Sex: Female

DRUGS (1)
  1. VENLAFAXINE HYDROCHLORIDE EXTENDED-RELEASE CAPSULES [Suspect]
     Active Substance: VENLAFAXINE HYDROCHLORIDE
     Indication: ANTIDEPRESSANT THERAPY
     Dosage: 112.5 MILLIGRAM DAILY; FORM STRENGTH: 37.5 MG AND 75 MG.
     Route: 065
     Dates: start: 20190418

REACTIONS (15)
  - Disturbance in attention [Unknown]
  - Loss of personal independence in daily activities [Unknown]
  - Memory impairment [Unknown]
  - Cognitive disorder [Unknown]
  - Dizziness [Unknown]
  - Impaired driving ability [Unknown]
  - Palpitations [Unknown]
  - Tremor [Unknown]
  - Paraesthesia [Unknown]
  - Lethargy [Unknown]
  - Burning sensation [Unknown]
  - Nightmare [Unknown]
  - Sleep disorder [Unknown]
  - Insomnia [Not Recovered/Not Resolved]
  - Fatigue [Unknown]
